FAERS Safety Report 7108945-9 (Version None)
Quarter: 2010Q4

REPORT INFORMATION
  Report Type: 
  Country: None (occurrence: None)
  Receive Date: 20101117
  Receipt Date: 20101109
  Transmission Date: 20110411
  Serious: Yes (Other)
  Sender: FDA-Public Use
  Company Number: US-PURDUE-USA-2010-0053747

PATIENT
  Age: 16 Year
  Sex: Female

DRUGS (1)
  1. OXYCONTIN [Suspect]
     Indication: CEREBRAL PALSY
     Dosage: 10 MG, BID
     Route: 048
     Dates: start: 20101001

REACTIONS (7)
  - ABDOMINAL DISCOMFORT [None]
  - ASPIRATION [None]
  - BACK PAIN [None]
  - DRUG EFFECT DECREASED [None]
  - GASTROOESOPHAGEAL REFLUX DISEASE [None]
  - HEADACHE [None]
  - MEDICATION RESIDUE [None]
